FAERS Safety Report 25714982 (Version 1)
Quarter: 2025Q3

REPORT INFORMATION
  Report Type: Report from Study
  Country: US (occurrence: US)
  Receive Date: 20250822
  Receipt Date: 20250822
  Transmission Date: 20251021
  Serious: Yes (Other)
  Sender: ABBVIE
  Company Number: US-ABBVIE-6425606

PATIENT
  Age: 81 Year
  Sex: Male

DRUGS (1)
  1. VENCLEXTA [Suspect]
     Active Substance: VENETOCLAX
     Indication: Chronic lymphocytic leukaemia
     Route: 048
     Dates: start: 20240810, end: 20250726

REACTIONS (3)
  - Cardiac ablation [Unknown]
  - Postoperative wound infection [Unknown]
  - Left atrial appendage closure implant [Unknown]

NARRATIVE: CASE EVENT DATE: 20250729
